FAERS Safety Report 8309123-8 (Version None)
Quarter: 2012Q2

REPORT INFORMATION
  Report Type: 
  Country: None (occurrence: None)
  Receive Date: 20120424
  Receipt Date: 20120416
  Transmission Date: 20120825
  Serious: Yes (Other)
  Sender: FDA-Public Use
  Company Number: PHHO2008AU06542

PATIENT
  Sex: Male
  Weight: 68 kg

DRUGS (15)
  1. CYCLOSPORINE [Suspect]
     Dosage: 75 MG, BID
     Route: 048
     Dates: start: 20081016, end: 20100409
  2. NO TREATMENT RECEIVED [Suspect]
     Indication: RENAL TRANSPLANT
     Dosage: NO TREATMENT
  3. PREDNISONE TAB [Suspect]
     Dosage: 5 MG, QD
     Route: 048
     Dates: start: 20081016
  4. CYCLOSPORINE [Suspect]
     Indication: RENAL TRANSPLANT
     Dosage: 300 MG, QD
     Dates: start: 20070703, end: 20070703
  5. CYCLOSPORINE [Suspect]
     Dosage: 525 MG, DAILY
     Dates: start: 20070706, end: 20070706
  6. CYCLOSPORINE [Suspect]
     Dosage: 400 MG, DAILY
     Dates: start: 20070705, end: 20070705
  7. CYCLOSPORINE [Suspect]
     Dosage: 500 MG, DAILY
     Dates: start: 20070707, end: 20070712
  8. CYCLOSPORINE [Suspect]
     Dosage: 450 MG, DAILY
     Dates: start: 20070713, end: 20070713
  9. CYCLOSPORINE [Suspect]
     Dosage: 275 MG, DAILY
     Dates: start: 20070720, end: 20070720
  10. MYFORTIC [Suspect]
     Indication: RENAL TRANSPLANT
     Dosage: 720 MG, BID
     Route: 048
     Dates: start: 20070703
  11. CYCLOSPORINE [Suspect]
     Dosage: 300 MG, DAILY
     Dates: start: 20070719, end: 20070719
  12. CYCLOSPORINE [Suspect]
     Dosage: 250 MG, DAILY
     Dates: start: 20070721, end: 20070903
  13. CYCLOSPORINE [Suspect]
     Dosage: 400 MG, DAILY
     Dates: start: 20070714, end: 20070718
  14. CYCLOSPORINE [Suspect]
     Dosage: 100 MG, BID
     Dates: start: 20070904
  15. PREDNISONE TAB [Suspect]
     Indication: RENAL TRANSPLANT
     Dosage: 10 MG, QD
     Route: 048
     Dates: start: 20070821

REACTIONS (2)
  - CONCOMITANT DISEASE PROGRESSION [None]
  - BASAL CELL CARCINOMA [None]
